FAERS Safety Report 10482469 (Version 1)
Quarter: 2014Q3

REPORT INFORMATION
  Report Type: Spontaneous
  Country: US (occurrence: US)
  Receive Date: 20140929
  Receipt Date: 20140929
  Transmission Date: 20150326
  Serious: Yes (Hospitalization)
  Sender: FDA-Public Use
  Company Number: US-PFIZER INC-2014264506

PATIENT
  Age: 60 Year
  Sex: Female
  Weight: 77.1 kg

DRUGS (11)
  1. GEODON [Suspect]
     Active Substance: ZIPRASIDONE HYDROCHLORIDE\ZIPRASIDONE MESYLATE
     Dosage: 80 MG AND 20 MG
     Dates: start: 201106
  2. GEODON [Suspect]
     Active Substance: ZIPRASIDONE HYDROCHLORIDE\ZIPRASIDONE MESYLATE
     Dosage: 60 MG, ONE IN MORNING AND ONE AT DINNER TIME.
     Dates: start: 201202
  3. HALDOL [Suspect]
     Active Substance: HALOPERIDOL
     Indication: MENTAL DISABILITY
     Dosage: 2 MG, 2X/DAY (AT NIGHT)
  4. METOPROLOL TARTRATE. [Suspect]
     Active Substance: METOPROLOL TARTRATE
     Indication: HYPERTENSION
     Dosage: 25 MG, 2X/DAY
     Dates: start: 2000
  5. GEODON [Suspect]
     Active Substance: ZIPRASIDONE HYDROCHLORIDE\ZIPRASIDONE MESYLATE
     Dosage: ONE 60 MG AND ONE 40 MG
  6. HALDOL [Suspect]
     Active Substance: HALOPERIDOL
     Indication: SCHIZOPHRENIA
  7. AMLODIPINE BESILATE [Suspect]
     Active Substance: AMLODIPINE BESYLATE
     Indication: HYPERTENSION
     Dosage: 5 MG, 1X/DAY
  8. CLONIDINE. [Suspect]
     Active Substance: CLONIDINE
     Indication: HYPERTENSION
     Dosage: 0.2 MG, 2X/DAY
  9. GEODON [Suspect]
     Active Substance: ZIPRASIDONE HYDROCHLORIDE\ZIPRASIDONE MESYLATE
     Indication: SCHIZOPHRENIA
     Dosage: 60 MG, 2X/DAY
  10. GEODON [Suspect]
     Active Substance: ZIPRASIDONE HYDROCHLORIDE\ZIPRASIDONE MESYLATE
     Dosage: 60 MG, 1X/DAY AT DINNER TIME
     Dates: start: 2012
  11. HYDRALAZINE [Suspect]
     Active Substance: HYDRALAZINE HYDROCHLORIDE
     Indication: HYPERTENSION
     Dosage: 10 MG, 2X/DAY

REACTIONS (11)
  - Hyperhidrosis [Recovering/Resolving]
  - Overweight [Unknown]
  - White blood cell count decreased [Unknown]
  - Drug intolerance [Unknown]
  - Blood cholesterol increased [Unknown]
  - Feeling abnormal [Unknown]
  - Fatigue [Unknown]
  - Mental disorder [Unknown]
  - Somnolence [Unknown]
  - Dizziness [Unknown]
  - Sedation [Unknown]

NARRATIVE: CASE EVENT DATE: 201202
